FAERS Safety Report 8021010-1 (Version None)
Quarter: 2011Q4

REPORT INFORMATION
  Report Type: 
  Country: None (occurrence: None)
  Receive Date: 20111229
  Receipt Date: 20111214
  Transmission Date: 20120403
  Serious: Yes (Other)
  Sender: FDA-Public Use
  Company Number: GB-DEXPHARM-20112067

PATIENT
  Age: 77 Year
  Sex: Female

DRUGS (8)
  1. ASPIRIN [Concomitant]
  2. LANSOPRAZOLE [Concomitant]
  3. MIRTAZAPINE [Concomitant]
  4. OMEPRAZOLE [Suspect]
     Dates: start: 20110701
  5. AMIODARONE HCL [Concomitant]
  6. SIMVASTATIN [Concomitant]
  7. DOTHIEPIN HYDROCHLORIDE [Concomitant]
  8. FUROSEMIDE [Concomitant]

REACTIONS (1)
  - ALOPECIA [None]
